FAERS Safety Report 24306139 (Version 1)
Quarter: 2024Q3

REPORT INFORMATION
  Report Type: Spontaneous
  Country: US (occurrence: US)
  Receive Date: 20240911
  Receipt Date: 20240911
  Transmission Date: 20241017
  Serious: Yes (Other)
  Sender: AMGEN
  Company Number: US-AMGEN-USASP2024176947

PATIENT
  Age: 15 Year
  Sex: Male

DRUGS (10)
  1. RITUXIMAB [Suspect]
     Active Substance: RITUXIMAB
     Indication: Epstein-Barr virus test positive
     Dosage: UNK
     Route: 065
  2. RITUXIMAB [Suspect]
     Active Substance: RITUXIMAB
     Indication: Thrombocytopenia
  3. RITUXIMAB [Suspect]
     Active Substance: RITUXIMAB
     Indication: Castleman^s disease
  4. PREDNISONE [Suspect]
     Active Substance: PREDNISONE
     Indication: Castleman^s disease
     Dosage: UNK
     Route: 065
  5. DEXAMETHASONE [Concomitant]
     Active Substance: DEXAMETHASONE
     Indication: Haemophagocytic lymphohistiocytosis
     Dosage: 10 MILLIGRAM/SQ. METER, QD
     Route: 065
  6. RUXOLITINIB [Concomitant]
     Active Substance: RUXOLITINIB
     Indication: Haemophagocytic lymphohistiocytosis
     Dosage: 5 MILLIGRAM, QD
     Route: 065
  7. RUXOLITINIB [Concomitant]
     Active Substance: RUXOLITINIB
     Indication: Oedema peripheral
  8. RUXOLITINIB [Concomitant]
     Active Substance: RUXOLITINIB
     Indication: Localised oedema
  9. ANAKINRA [Concomitant]
     Active Substance: ANAKINRA
     Indication: Haemophagocytic lymphohistiocytosis
     Dosage: 5 MILLIGRAM/KILOGRAM, BID
     Route: 065
  10. GANCICLOVIR [Concomitant]
     Active Substance: GANCICLOVIR
     Indication: Haemophagocytic lymphohistiocytosis
     Dosage: UNK
     Route: 065

REACTIONS (3)
  - Castleman^s disease [Unknown]
  - Drug ineffective for unapproved indication [Unknown]
  - Off label use [Unknown]
